FAERS Safety Report 7352034-5 (Version None)
Quarter: 2011Q1

REPORT INFORMATION
  Report Type: 
  Country: None (occurrence: None)
  Receive Date: 20110309
  Receipt Date: 20110309
  Transmission Date: 20110831
  Serious: No
  Sender: FDA-Public Use
  Company Number: None

PATIENT
  Age: 63 Year
  Sex: Male
  Weight: 91.7 kg

DRUGS (1)
  1. OSELTAMIVIR [Suspect]
     Dosage: 75 MG EVERY DAY PO
     Route: 048
     Dates: start: 20101229, end: 20101230

REACTIONS (2)
  - HEPATIC FAILURE [None]
  - HEPATORENAL SYNDROME [None]
